FAERS Safety Report 9176509 (Version 2)
Quarter: 2013Q2

REPORT INFORMATION
  Report Type: Spontaneous
  Country: US (occurrence: US)
  Receive Date: 20120531
  Receipt Date: 20130529
  Transmission Date: 20140414
  Serious: Yes (Hospitalization, Other)
  Sender: FDA-Public Use
  Company Number: US201201007857

PATIENT
  Age: 46 Year
  Sex: Male

DRUGS (30)
  1. BYETTA PEN DISPOSABLE [Suspect]
     Route: 058
  2. FLEXERIL [Concomitant]
     Dosage: TAB?AS NEEDED
     Route: 048
  3. ZYLOPRIM [Concomitant]
     Dosage: TABS,2 PER DAY
     Route: 048
     Dates: start: 20110617
  4. BAYER ASPIRIN [Concomitant]
     Dosage: 81MG,ORAL.LAST DOSE:16JUN2011
     Route: 048
  5. CATAPRES [Concomitant]
     Indication: BLOOD PRESSURE INCREASED
     Dosage: TABS
     Route: 048
  6. BENADRYL [Concomitant]
     Indication: PRURITUS
     Dosage: FOR:25MG CAPS,DOSE:25-50MG?AS NEEDED
     Route: 048
  7. VITAMIN D2 [Concomitant]
     Dosage: CAPS
     Route: 048
  8. VYTORIN [Concomitant]
     Dosage: 1DF:10/40 MG,TABS
     Route: 048
  9. LASIX [Concomitant]
     Dosage: TABS
     Route: 048
  10. LEVEMIR [Concomitant]
     Dosage: INCREASE 30 UNITS,80 UNITS AT BED TIME, 100 UNIT/ML?SOL
     Route: 058
  11. INSULIN ASPART [Concomitant]
     Route: 058
  12. ZESTRIL [Concomitant]
     Dosage: 20MG/D,TABS?LAST DOSE:16JUN2011
     Route: 048
  13. ATIVAN [Concomitant]
     Dosage: TABS?AS NEEDED
     Route: 048
  14. LOPRESSOR [Concomitant]
     Dosage: 25 MG :BID,TABS,EVERY 8 HRS?50MG TABS,2 PER DAY, LAST DOSE:16JUN2011
     Route: 048
  15. NITROQUICK [Concomitant]
     Dosage: TABS
     Route: 060
  16. PRILOSEC [Concomitant]
     Dosage: CAPS
     Route: 048
  17. PHENERGAN [Concomitant]
     Dosage: PRN
     Route: 048
  18. DARVOCET [Concomitant]
     Dosage: 1 DF:1 TAB EVERY 6 HRS
     Route: 048
  19. JANUVIA [Concomitant]
     Dosage: TABS
     Route: 048
  20. ULTRAM [Concomitant]
     Dosage: EVERY 4-6 HRS,LAST DOSE:16JUN2011
     Route: 048
  21. COUMADIN TABS [Concomitant]
     Dosage: 7.5MG/D,12.5MG .?10MG
     Route: 048
  22. GLIPIZIDE [Concomitant]
  23. VASOTEC [Concomitant]
  24. VITAMIN D3 [Concomitant]
     Dosage: 2000 UNITS TABS
     Route: 048
  25. VITAMIN B12 [Concomitant]
     Route: 048
  26. HYDRODIURIL [Concomitant]
     Dosage: LAST DOSE:16JUN2011
     Route: 048
  27. DILAUDID [Concomitant]
     Dosage: EVERY 6-8 HRS AS NEEDED
     Route: 048
     Dates: start: 20110617
  28. ZAROXOLYN [Concomitant]
     Route: 048
  29. K-DUR [Concomitant]
     Route: 048
  30. ZOCOR [Concomitant]
     Dosage: AT BED TIME,LAST DOSE:16JUN2011
     Route: 048

REACTIONS (4)
  - Pancreatitis acute [Recovering/Resolving]
  - Pulmonary embolism [Unknown]
  - Renal failure acute [Recovered/Resolved]
  - Coronary artery disease [Unknown]
